FAERS Safety Report 14785294 (Version 1)
Quarter: 2018Q2

REPORT INFORMATION
  Report Type: Other
  Country: None (occurrence: JP)
  Receive Date: 20180420
  Receipt Date: 20180420
  Transmission Date: 20180711
  Serious: Yes (Hospitalization, Other)
  Sender: FDA-Public Use
  Company Number: JP-LABORATOIRE HRA PHARMA-2046166

PATIENT
  Age: 66 Year
  Sex: Female

DRUGS (1)
  1. METOPIRONE [Suspect]
     Active Substance: METYRAPONE
     Indication: ECTOPIC ACTH SYNDROME
     Route: 048

REACTIONS (1)
  - Pneumocystis jirovecii pneumonia [Unknown]
